FAERS Safety Report 5533130-1 (Version None)
Quarter: 2007Q4

REPORT INFORMATION
  Report Type: 
  Country: None (occurrence: None)
  Receive Date: 20071130
  Receipt Date: 20071130
  Transmission Date: 20080405
  Serious: Yes (Life-Threatening, Hospitalization)
  Sender: FDA-Public Use
  Company Number: None

PATIENT
  Age: 61 Year
  Sex: Female
  Weight: 77.5651 kg

DRUGS (5)
  1. NIASPAN [Suspect]
     Indication: BLOOD CHOLESTEROL INCREASED
     Dosage: 1 TABLET  BEDTIME  PO
     Route: 048
     Dates: start: 20071101, end: 20071102
  2. ATENOL/CHLOR [Concomitant]
  3. ASCORBIC ACID [Concomitant]
  4. GLUCOSAMINE [Concomitant]
  5. CHONDROITIN [Concomitant]

REACTIONS (10)
  - CHILLS [None]
  - DIZZINESS [None]
  - FALL [None]
  - FLUSHING [None]
  - HEAD INJURY [None]
  - HYPERHIDROSIS [None]
  - PAIN [None]
  - PALPITATIONS [None]
  - SYNCOPE [None]
  - VERTEBRAL INJURY [None]
